FAERS Safety Report 17916005 (Version 1)
Quarter: 2020Q2

REPORT INFORMATION
  Report Type: Spontaneous
  Country: US (occurrence: US)
  Receive Date: 20200618
  Receipt Date: 20200618
  Transmission Date: 20200714
  Serious: Yes (Other)
  Sender: FDA-Public Use
  Company Number: None

PATIENT
  Age: 64 Year
  Sex: Female
  Weight: 99 kg

DRUGS (6)
  1. LISINORPRIL [Concomitant]
     Active Substance: LISINOPRIL
  2. GLIMEPIRIDE. [Concomitant]
     Active Substance: GLIMEPIRIDE
  3. LETROZONE [Concomitant]
  4. AMLODIPINE [Concomitant]
     Active Substance: AMLODIPINE BESYLATE
  5. METFORMIN HYDROCHLORIDE EXTENDED RELEASE TABLETS USP 500MG [Suspect]
     Active Substance: METFORMIN HYDROCHLORIDE
     Indication: DIABETES MELLITUS
     Dosage: ?          QUANTITY:1 CAPSULE(S);?
     Route: 048
  6. ONE A DAY WOMAN^S MULTI VITAMIN [Concomitant]

REACTIONS (3)
  - Abdominal pain upper [None]
  - Anal incontinence [None]
  - Diarrhoea [None]

NARRATIVE: CASE EVENT DATE: 20191001
